FAERS Safety Report 24242466 (Version 1)
Quarter: 2024Q3

REPORT INFORMATION
  Report Type: Spontaneous
  Country: US (occurrence: None)
  Receive Date: 20240822
  Receipt Date: 20240822
  Transmission Date: 20241016
  Serious: Yes (Hospitalization, Other)
  Sender: Public
  Company Number: None

PATIENT
  Age: 75 Month
  Sex: Female
  Weight: 49.76 kg

DRUGS (2)
  1. AXICABTAGENE CILOLEUCEL [Suspect]
     Active Substance: AXICABTAGENE CILOLEUCEL
     Indication: Diffuse large B-cell lymphoma
     Dosage: OTHER FREQUENCY : ONCE;?
     Route: 042
     Dates: start: 20240715, end: 20240715
  2. AXICABTAGENE CILOLEUCEL [Concomitant]
     Active Substance: AXICABTAGENE CILOLEUCEL
     Dates: start: 20240715, end: 20240715

REACTIONS (12)
  - Dyspnoea [None]
  - Cough [None]
  - Oxygen saturation decreased [None]
  - Weight increased [None]
  - Hypervolaemia [None]
  - Abdominal distension [None]
  - Atelectasis [None]
  - Pleural effusion [None]
  - Chest pain [None]
  - Troponin increased [None]
  - Electrocardiogram T wave inversion [None]
  - Cardiac failure [None]
